FAERS Safety Report 9725985 (Version 8)
Quarter: 2014Q2

REPORT INFORMATION
  Report Type: Spontaneous
  Country: FR (occurrence: FR)
  Receive Date: 20131203
  Receipt Date: 20140627
  Transmission Date: 20141212
  Serious: Yes (Life-Threatening, Hospitalization)
  Sender: FDA-Public Use
  Company Number: FR-NOVOPROD-392428

PATIENT
  Age: 32 Year
  Sex: Male

DRUGS (4)
  1. NOVOMIX 30 FLEXPEN [Suspect]
     Indication: TYPE 1 DIABETES MELLITUS
     Dosage: 79 IU, QD (31+48 IU NOON AND EVENING)
     Route: 058
  2. NOVOMIX 30 FLEXPEN [Suspect]
     Dosage: UNK
     Route: 058
  3. NOVOMIX 30 FLEXPEN [Suspect]
     Dosage: 79 IU, QD (31+48 IU NOON AND EVENING)
     Route: 058
  4. NOVOMIX 30 FLEXPEN [Suspect]
     Dosage: 79IU (31 IU PLUS OR MINUS 1- 2IU AT NOON AND 48 IU PLUS OR MINUS 1-2 IU IN EVENING)
     Route: 058
     Dates: end: 201310

REACTIONS (11)
  - Tongue biting [Recovered/Resolved with Sequelae]
  - Renal failure acute [Recovered/Resolved with Sequelae]
  - Convulsion [Recovered/Resolved with Sequelae]
  - Hypoglycaemia [Recovered/Resolved with Sequelae]
  - Diabetic ketoacidosis [Recovered/Resolved with Sequelae]
  - Diabetes mellitus inadequate control [Recovered/Resolved with Sequelae]
  - Loss of consciousness [Recovered/Resolved with Sequelae]
  - Vomiting [Unknown]
  - General physical health deterioration [Unknown]
  - Weight decreased [Unknown]
  - Overdose [Unknown]
